FAERS Safety Report 14677518 (Version 5)
Quarter: 2018Q2

REPORT INFORMATION
  Report Type: Report from Study
  Country: PL (occurrence: PL)
  Receive Date: 20180325
  Receipt Date: 20180621
  Transmission Date: 20180711
  Serious: Yes (Death, Hospitalization, Other)
  Sender: FDA-Public Use
  Company Number: PL-EXELIXIS-XL18418012881

PATIENT
  Age: 57 Year
  Sex: Male

DRUGS (16)
  1. BLINDED XL184 [Suspect]
     Active Substance: CABOZANTINIB
     Dosage: UNK
     Route: 048
     Dates: end: 20180213
  2. OXYCODON [Concomitant]
     Active Substance: OXYCODONE
  3. ALFADIOL [Concomitant]
     Active Substance: ALFACALCIDOL
  4. ROTICOX [Concomitant]
  5. EUTHYROX [Concomitant]
     Active Substance: LEVOTHYROXINE SODIUM
  6. VETIRA [Concomitant]
  7. DEXAMETHASON [Concomitant]
     Active Substance: DEXAMETHASONE
  8. LYRICA [Concomitant]
     Active Substance: PREGABALIN
  9. BIOMENTIN [Concomitant]
  10. RELANIUM [Concomitant]
     Active Substance: DIAZEPAM
  11. BLINDED XL184 [Suspect]
     Active Substance: CABOZANTINIB
     Dosage: UNK
     Route: 048
     Dates: end: 20180213
  12. COGITON [Concomitant]
  13. BLINDED XL184 [Suspect]
     Active Substance: CABOZANTINIB
     Indication: MEDULLARY THYROID CANCER
     Dosage: UNK
     Route: 048
     Dates: start: 20170829
  14. BLINDED XL184 [Suspect]
     Active Substance: CABOZANTINIB
     Indication: MEDULLARY THYROID CANCER
     Dosage: UNK
     Route: 048
     Dates: start: 20170829
  15. DULSEVIA [Concomitant]
  16. CALPEROS [Concomitant]
     Active Substance: CALCIUM CARBONATE

REACTIONS (2)
  - Posterior reversible encephalopathy syndrome [Fatal]
  - Pyrexia [Fatal]

NARRATIVE: CASE EVENT DATE: 20180302
